FAERS Safety Report 7406750-7 (Version None)
Quarter: 2011Q2

REPORT INFORMATION
  Report Type: 
  Country: None (occurrence: None)
  Receive Date: 20110411
  Receipt Date: 20110406
  Transmission Date: 20111010
  Serious: Yes (Other)
  Sender: FDA-Public Use
  Company Number: SE-PFIZER INC-2011049234

PATIENT
  Age: 30 Year
  Sex: Female

DRUGS (2)
  1. ORUDIS - SLOW RELEASE [Suspect]
     Dosage: 200 MG, DAILY
     Dates: start: 20100501, end: 20110301
  2. SALAZOPYRIN EN [Suspect]
     Indication: RHEUMATOID ARTHRITIS
     Dosage: 2 G, 1X/DAY
     Dates: start: 20100601, end: 20110301

REACTIONS (7)
  - APHTHOUS STOMATITIS [None]
  - INSOMNIA [None]
  - VULVOVAGINAL ULCERATION [None]
  - LIP ULCERATION [None]
  - DECREASED APPETITE [None]
  - RECTAL ULCER [None]
  - SWOLLEN TONGUE [None]
